FAERS Safety Report 8328223-X (Version None)
Quarter: 2012Q2

REPORT INFORMATION
  Report Type: 
  Country: None (occurrence: None)
  Receive Date: 20120502
  Receipt Date: 20120423
  Transmission Date: 20120825
  Serious: Yes (Other)
  Sender: FDA-Public Use
  Company Number: US-BAYER-2012-039982

PATIENT
  Age: 50 Year
  Sex: Female
  Weight: 63 kg

DRUGS (3)
  1. NAPROXEN SODIUM [Suspect]
     Indication: ARTHRALGIA
     Dosage: 1 DF AT DIFFERENT FREQUENCY
     Route: 048
     Dates: start: 20120421, end: 20120422
  2. NABUMETONE [Concomitant]
  3. ACETAMINOPHEN [Concomitant]

REACTIONS (6)
  - UNEVALUABLE EVENT [None]
  - MIGRAINE [None]
  - NECK PAIN [None]
  - JOINT RANGE OF MOTION DECREASED [None]
  - MUSCULOSKELETAL STIFFNESS [None]
  - HEADACHE [None]
